FAERS Safety Report 6283853-4 (Version None)
Quarter: 2009Q3

REPORT INFORMATION
  Report Type: 
  Country: None (occurrence: None)
  Receive Date: 20090722
  Receipt Date: 20090722
  Transmission Date: 20100115
  Serious: Yes (Other)
  Sender: FDA-Public Use
  Company Number: None

PATIENT
  Sex: Male

DRUGS (2)
  1. OTRIVIN [Suspect]
     Dosage: NASAL, 4 TIMES IN AN HOUR, UP TO 12 TIMES A DAY, NASAL
     Route: 045
     Dates: start: 20090101, end: 20090101
  2. OTRIVIN [Suspect]
     Dosage: NASAL, 4 TIMES IN AN HOUR, UP TO 12 TIMES A DAY, NASAL
     Route: 045
     Dates: start: 20090401, end: 20090401

REACTIONS (2)
  - ANOSMIA [None]
  - OVERDOSE [None]
